FAERS Safety Report 12521716 (Version 1)
Quarter: 2016Q3

REPORT INFORMATION
  Report Type: Spontaneous
  Country: IT (occurrence: IT)
  Receive Date: 20160701
  Receipt Date: 20160701
  Transmission Date: 20161109
  Serious: Yes (Hospitalization)
  Sender: FDA-Public Use
  Company Number: IT-009507513-1606ITA011853

PATIENT
  Age: 53 Year
  Sex: Male

DRUGS (6)
  1. PANTOPRAZOLE [Concomitant]
     Active Substance: PANTOPRAZOLE SODIUM
  2. TEMOZOLOMIDE. [Suspect]
     Active Substance: TEMOZOLOMIDE
     Indication: ANAPLASTIC ASTROCYTOMA
     Dosage: 140 MG, DAILY
     Route: 048
     Dates: start: 20150530, end: 20150714
  3. BACTRIM [Concomitant]
     Active Substance: SULFAMETHOXAZOLE\TRIMETHOPRIM
  4. KEPPRA [Concomitant]
     Active Substance: LEVETIRACETAM
  5. ESCITALOPRAM [Concomitant]
     Active Substance: ESCITALOPRAM OXALATE
  6. SOLDESAM [Suspect]
     Active Substance: DEXAMETHASONE
     Dosage: 8 MG, DAILY
     Route: 048
     Dates: start: 20150415, end: 20150714

REACTIONS (1)
  - Encephalitis viral [Recovered/Resolved]

NARRATIVE: CASE EVENT DATE: 20150714
